FAERS Safety Report 4473141-0 (Version None)
Quarter: 2004Q4

REPORT INFORMATION
  Report Type: 
  Country: None (occurrence: None)
  Receive Date: 20041007
  Receipt Date: 20041007
  Transmission Date: 20050328
  Serious: No
  Sender: FDA-Public Use
  Company Number: None

PATIENT
  Age: 96 Year
  Sex: Female

DRUGS (1)
  1. RISPERDAL [Suspect]
     Dosage: ORAL SOLUTION

REACTIONS (1)
  - MEDICATION ERROR [None]
